FAERS Safety Report 6516597-1 (Version None)
Quarter: 2009Q4

REPORT INFORMATION
  Report Type: 
  Country: None (occurrence: None)
  Receive Date: 20091223
  Receipt Date: 20091222
  Transmission Date: 20100525
  Serious: Yes (Death, Hospitalization)
  Sender: FDA-Public Use
  Company Number: DE-AMGEN-UK373705

PATIENT
  Age: 57 Year
  Sex: Female
  Weight: 60 kg

DRUGS (5)
  1. ARANESP [Suspect]
     Indication: ANAEMIA OF MALIGNANT DISEASE
     Route: 058
     Dates: start: 20081001, end: 20081121
  2. CARBOPLATIN [Concomitant]
     Route: 042
     Dates: start: 20080701, end: 20090107
  3. GEMCITABINE [Concomitant]
     Route: 042
     Dates: start: 20080701, end: 20090107
  4. TOPOTECAN [Concomitant]
     Route: 042
     Dates: start: 20090116, end: 20090220
  5. AVASTIN [Concomitant]
     Route: 042
     Dates: start: 20090225, end: 20090319

REACTIONS (1)
  - THROMBOSIS [None]
